FAERS Safety Report 5275686-2 (Version None)
Quarter: 2007Q1

REPORT INFORMATION
  Report Type: 
  Country: None (occurrence: None)
  Receive Date: 20070326
  Receipt Date: 20070319
  Transmission Date: 20070707
  Serious: Yes (Death, Hospitalization, Other)
  Sender: FDA-Public Use
  Company Number: PHEH2007US03103

PATIENT
  Age: 31 Year
  Sex: Female

DRUGS (7)
  1. LASIX [Concomitant]
     Dosage: 20 MG, PRN
     Route: 048
  2. GLEEVEC [Suspect]
     Indication: CHRONIC MYELOID LEUKAEMIA
     Dosage: 400 MG, QD
     Route: 048
     Dates: start: 20020101, end: 20020901
  3. GLEEVEC [Suspect]
     Dosage: 600 MG, QD
     Route: 048
     Dates: start: 20020901, end: 20021201
  4. GLEEVEC [Suspect]
     Route: 048
     Dates: start: 20030101, end: 20030601
  5. GLEEVEC [Suspect]
     Route: 048
     Dates: start: 20031001
  6. GLEEVEC [Suspect]
     Route: 048
     Dates: start: 20060801, end: 20061201
  7. GLEEVEC [Suspect]
     Dosage: 300 MG, QD
     Route: 048
     Dates: start: 20020219, end: 20020730

REACTIONS (10)
  - ACUTE MYELOID LEUKAEMIA [None]
  - BLAST CRISIS IN MYELOGENOUS LEUKAEMIA [None]
  - CARDIAC ARREST [None]
  - DEEP VEIN THROMBOSIS [None]
  - PLATELET COUNT DECREASED [None]
  - PNEUMONIA [None]
  - PULMONARY HAEMORRHAGE [None]
  - SPLENIC RUPTURE [None]
  - WEIGHT INCREASED [None]
  - WHITE BLOOD CELL COUNT INCREASED [None]
